FAERS Safety Report 8920940 (Version 1)
Quarter: 2012Q4

REPORT INFORMATION
  Report Type: 
  Country: US (occurrence: US)
  Receive Date: 20121122
  Receipt Date: 20121122
  Transmission Date: 20130627
  Serious: No
  Sender: FDA-Public Use
  Company Number: US-PFIZER INC-2012288331

PATIENT
  Age: 67 Year
  Sex: Female
  Weight: 68.93 kg

DRUGS (2)
  1. ESTRING [Suspect]
     Indication: ESTROGEN THERAPY
     Dosage: UNK
     Dates: start: 201211, end: 201211
  2. ADVICOR [Concomitant]
     Dosage: UNK

REACTIONS (1)
  - Drug ineffective [Unknown]
